FAERS Safety Report 4559579-1 (Version None)
Quarter: 2005Q1

REPORT INFORMATION
  Report Type: 
  Country: None (occurrence: None)
  Receive Date: 20050119
  Receipt Date: 20050110
  Transmission Date: 20050727
  Serious: Yes (Hospitalization)
  Sender: FDA-Public Use
  Company Number: 2005009145

PATIENT
  Age: 54 Year
  Sex: Female

DRUGS (4)
  1. METRONIDAZOLE [Suspect]
     Indication: HELICOBACTER INFECTION
     Dosage: 1 GRAM
     Dates: start: 20020302, end: 20020507
  2. CYCLOSPORINE [Concomitant]
  3. PREDNISOLONE [Concomitant]
  4. AMOXICILLIN [Concomitant]

REACTIONS (8)
  - CEREBELLAR ATAXIA [None]
  - CEREBELLAR SYNDROME [None]
  - DYSARTHRIA [None]
  - GAIT DISTURBANCE [None]
  - HYPERCHOLESTEROLAEMIA [None]
  - HYPERGLYCAEMIA [None]
  - PROTEINURIA [None]
  - SPEECH DISORDER [None]
